FAERS Safety Report 11221119 (Version 2)
Quarter: 2017Q3

REPORT INFORMATION
  Report Type: Spontaneous
  Country: US (occurrence: US)
  Receive Date: 20150626
  Receipt Date: 20170801
  Transmission Date: 20171127
  Serious: Yes (Death, Life-Threatening, Other)
  Sender: FDA-Public Use
  Company Number: US-SUN PHARMACEUTICAL INDUSTRIES LTD-2015US-99363

PATIENT
  Age: 26 Year
  Sex: Male

DRUGS (2)
  1. LOPERAMIDE [Suspect]
     Active Substance: LOPERAMIDE
     Indication: PRODUCT USED FOR UNKNOWN INDICATION
     Dosage: 100 DF, BID (800 MG/DAILY)
     Route: 048
  2. LOPERAMIDE [Suspect]
     Active Substance: LOPERAMIDE
     Dosage: 200 DF, BID
     Route: 048

REACTIONS (6)
  - Overdose [Unknown]
  - Suicide attempt [Unknown]
  - Death [Fatal]
  - Cardiac arrest [Recovering/Resolving]
  - Drug abuse [Unknown]
  - Drug dependence [Unknown]
